FAERS Safety Report 13343024 (Version 1)
Quarter: 2017Q1

REPORT INFORMATION
  Report Type: Report from Study
  Country: US (occurrence: US)
  Receive Date: 20170316
  Receipt Date: 20170316
  Transmission Date: 20170428
  Serious: Yes (Death, Other)
  Sender: FDA-Public Use
  Company Number: US-GILEAD-2017-0262367

PATIENT
  Age: 94 Year
  Sex: Female

DRUGS (10)
  1. PREDNISONE. [Concomitant]
     Active Substance: PREDNISONE
  2. FOLIC ACID. [Concomitant]
     Active Substance: FOLIC ACID
  3. METHOTREXATE. [Concomitant]
     Active Substance: METHOTREXATE
  4. AMBRISENTAN [Suspect]
     Active Substance: AMBRISENTAN
     Indication: PULMONARY ARTERIAL HYPERTENSION
     Dosage: 10 MG, QD
     Route: 065
     Dates: start: 20160829, end: 20170119
  5. CALCIUM ACETATE. [Concomitant]
     Active Substance: CALCIUM ACETATE
  6. DIGOXIN. [Concomitant]
     Active Substance: DIGOXIN
  7. ATENOLOL. [Concomitant]
     Active Substance: ATENOLOL
  8. SILDENAFIL. [Concomitant]
     Active Substance: SILDENAFIL
  9. PRAVASTATIN. [Concomitant]
     Active Substance: PRAVASTATIN
  10. SOTALOL. [Concomitant]
     Active Substance: SOTALOL

REACTIONS (1)
  - Death [Fatal]

NARRATIVE: CASE EVENT DATE: 20170119
